FAERS Safety Report 6992975 (Version 11)
Quarter: 2017Q4

REPORT INFORMATION
  Report Type: Report from Study
  Country: CA (occurrence: CA)
  Receive Date: 20090513
  Receipt Date: 20171220
  Transmission Date: 20180321
  Serious: Yes (Hospitalization, Other)
  Sender: FDA-Public Use
  Company Number: PHHY2008CA21011

PATIENT
  Age: 81 Year
  Sex: Female

DRUGS (2)
  1. SANDOSTATIN LAR DEPOT [Suspect]
     Active Substance: OCTREOTIDE ACETATE
     Dosage: 30 MG, QMO (EVERY 4 WEEKS)
     Route: 030
  2. SANDOSTATIN LAR DEPOT [Suspect]
     Active Substance: OCTREOTIDE ACETATE
     Indication: CARCINOID TUMOUR
     Dosage: 30 MG, QMO (ONCE  A MONTH)
     Route: 030
     Dates: start: 20080722

REACTIONS (24)
  - Heart rate decreased [Unknown]
  - Arthritis [Not Recovered/Not Resolved]
  - Gait disturbance [Not Recovered/Not Resolved]
  - Bone disorder [Unknown]
  - Fatigue [Unknown]
  - Pulmonary mass [Not Recovered/Not Resolved]
  - Back pain [Not Recovered/Not Resolved]
  - Retroperitoneal lymphadenopathy [Unknown]
  - Diarrhoea [Unknown]
  - Fall [Unknown]
  - Limb injury [Unknown]
  - Sleep disorder [Recovering/Resolving]
  - Back injury [Not Recovered/Not Resolved]
  - Bone density decreased [Unknown]
  - Blood pressure systolic increased [Unknown]
  - Blood pressure increased [Unknown]
  - Lymphadenopathy [Unknown]
  - Hepatic lesion [Unknown]
  - Biliary dilatation [Not Recovered/Not Resolved]
  - Blood pressure diastolic decreased [Unknown]
  - Femur fracture [Unknown]
  - Hip fracture [Unknown]
  - Contusion [Unknown]
  - Cholelithiasis [Unknown]

NARRATIVE: CASE EVENT DATE: 200902
